FAERS Safety Report 7459620-2 (Version None)
Quarter: 2011Q2

REPORT INFORMATION
  Report Type: 
  Country: None (occurrence: None)
  Receive Date: 20110504
  Receipt Date: 20110504
  Transmission Date: 20111010
  Serious: No
  Sender: FDA-Public Use
  Company Number: None

PATIENT
  Age: 50 Year
  Sex: Female
  Weight: 90.7194 kg

DRUGS (1)
  1. CLOZAPINE [Suspect]
     Dosage: 125 MG HS PO
     Route: 048

REACTIONS (1)
  - HEPATIC ENZYME INCREASED [None]
